FAERS Safety Report 11138960 (Version 2)
Quarter: 2015Q2

REPORT INFORMATION
  Report Type: Report from Study
  Country: US (occurrence: US)
  Receive Date: 20150527
  Receipt Date: 20150630
  Transmission Date: 20150821
  Serious: Yes (Other)
  Sender: FDA-Public Use
  Company Number: US-BIOGENIDEC-2015BI070728

PATIENT
  Sex: Female

DRUGS (2)
  1. ZALCYTE (NOS) [Concomitant]
  2. TYSABRI [Suspect]
     Active Substance: NATALIZUMAB
     Indication: MULTIPLE SCLEROSIS
     Route: 042
     Dates: start: 20090423

REACTIONS (4)
  - Immunosuppression [Not Recovered/Not Resolved]
  - Decreased immune responsiveness [Not Recovered/Not Resolved]
  - Amnesia [Not Recovered/Not Resolved]
  - Necrotising herpetic retinopathy [Recovered/Resolved with Sequelae]
